FAERS Safety Report 8927883 (Version 1)
Quarter: 2012Q4

REPORT INFORMATION
  Report Type: 
  Country: JP (occurrence: JP)
  Receive Date: 20121127
  Receipt Date: 20121127
  Transmission Date: 20130627
  Serious: Yes (Life-Threatening, Other)
  Sender: FDA-Public Use
  Company Number: JP-ELI_LILLY_AND_COMPANY-JP201211005058

PATIENT
  Age: 50 Year
  Sex: Male

DRUGS (4)
  1. ZYPREXA [Suspect]
     Indication: DEPRESSION
     Dosage: 20 mg, UNK
  2. FLUVOXAMINE [Concomitant]
     Indication: DEPRESSION
     Dosage: 75 mg, UNK
  3. TRAZODONE [Concomitant]
     Indication: DEPRESSION
     Dosage: 50 mg, UNK
  4. SULPIRIDE [Concomitant]
     Indication: DEPRESSION
     Dosage: 100 mg, UNK

REACTIONS (2)
  - Long QT syndrome [Recovered/Resolved]
  - Appendicitis [Unknown]
